FAERS Safety Report 20865440 (Version 3)
Quarter: 2022Q2

REPORT INFORMATION
  Report Type: Spontaneous
  Country: US (occurrence: US)
  Receive Date: 20220524
  Receipt Date: 20220628
  Transmission Date: 20220721
  Serious: No
  Sender: FDA-Public Use
  Company Number: US-PFIZER INC-202200643096

PATIENT
  Age: 22 Year
  Sex: Female
  Weight: 90.72 kg

DRUGS (5)
  1. GENOTROPIN [Suspect]
     Active Substance: SOMATROPIN
     Indication: Growth hormone deficiency
     Dosage: 0.3 MG, 1X/DAY
  2. GENOTROPIN [Suspect]
     Active Substance: SOMATROPIN
     Dosage: 0.2 MG, DAILY
  3. GENOTROPIN [Suspect]
     Active Substance: SOMATROPIN
     Dosage: 0.4 MG, DAILY
  4. GENOTROPIN [Suspect]
     Active Substance: SOMATROPIN
     Dosage: 0.2 MG, ALTERNATE DAY (INJECT 0.2MG ALTERNATING WITH 0.4MG UNDER THE SKIN EVERY OTHER DAY)
     Route: 058
  5. GENOTROPIN [Suspect]
     Active Substance: SOMATROPIN
     Dosage: 0.4 MG, ALTERNATE DAY (INJECT 0.2MG ALTERNATING WITH 0.4MG UNDER THE SKIN EVERY OTHER DAY)
     Route: 058

REACTIONS (4)
  - Wrong technique in device usage process [Unknown]
  - Drug dose omission by device [Unknown]
  - Device breakage [Unknown]
  - Off label use [Unknown]

NARRATIVE: CASE EVENT DATE: 20220427
